FAERS Safety Report 24733739 (Version 1)
Quarter: 2024Q4

REPORT INFORMATION
  Report Type: Report from Study
  Country: US (occurrence: CA)
  Receive Date: 20241213
  Receipt Date: 20241213
  Transmission Date: 20250114
  Serious: Yes (Hospitalization, Other)
  Sender: HLS THERAPEUTICS
  Company Number: US-HLS-202401848

PATIENT
  Age: 62 Year
  Sex: Male

DRUGS (5)
  1. CLOZARIL [Suspect]
     Active Substance: CLOZAPINE
     Indication: Product used for unknown indication
     Dosage: 100 MG TWICE A DAY
     Route: 065
     Dates: start: 20240927
  2. CLOZARIL [Suspect]
     Active Substance: CLOZAPINE
     Indication: Product used for unknown indication
     Dosage: STARTED CLOZARIL {1 YEAR. CLOZARIL 150 MG DAILY + 100 MG EVERY NIGHT AT BEDTIME.
     Route: 065
     Dates: end: 20240927
  3. WELLBUTRIN XL [Concomitant]
     Active Substance: BUPROPION HYDROCHLORIDE
     Indication: Product used for unknown indication
     Dosage: 150 MG DAILY
     Route: 065
  4. COGENTIN [Concomitant]
     Active Substance: BENZTROPINE MESYLATE
     Indication: Product used for unknown indication
     Dosage: 1 MG DAILY+ 3 MG EVERY NIGHT AT BEDTIME
     Route: 065
  5. GLYCOPYRROLATE [Concomitant]
     Active Substance: GLYCOPYRROLATE
     Indication: Drooling
     Dosage: 1 MG TWICE A DAY.
     Route: 065

REACTIONS (9)
  - Hallucination, auditory [Not Recovered/Not Resolved]
  - Agitation [Unknown]
  - Drooling [Recovered/Resolved]
  - Conjunctivitis [Unknown]
  - Depression [Unknown]
  - Treatment noncompliance [Unknown]
  - Poor quality sleep [Unknown]
  - Psychiatric decompensation [Recovered/Resolved]
  - Psychotic disorder [Unknown]
